FAERS Safety Report 5229998-9 (Version None)
Quarter: 2007Q1

REPORT INFORMATION
  Report Type: 
  Country: None (occurrence: None)
  Receive Date: 20070206
  Receipt Date: 20060814
  Transmission Date: 20070707
  Serious: No
  Sender: FDA-Public Use
  Company Number: US-GLAXOSMITHKLINE-A0616536A

PATIENT
  Age: 39 Year
  Sex: Male

DRUGS (3)
  1. PAXIL [Suspect]
     Dosage: 10MG PER DAY
     Route: 048
     Dates: end: 20060806
  2. ZANTAC [Concomitant]
  3. UNSPECIFIED MEDICATION [Concomitant]

REACTIONS (5)
  - ACTIVITIES OF DAILY LIVING IMPAIRED [None]
  - DIZZINESS [None]
  - IMPAIRED DRIVING ABILITY [None]
  - NAUSEA [None]
  - SENSORY DISTURBANCE [None]
